FAERS Safety Report 6781726-1 (Version None)
Quarter: 2010Q2

REPORT INFORMATION
  Report Type: 
  Country: None (occurrence: None)
  Receive Date: 20100618
  Receipt Date: 20100618
  Transmission Date: 20101027
  Serious: Yes (Life-Threatening, Hospitalization, Disabling)
  Sender: FDA-Public Use
  Company Number: None

PATIENT
  Age: 86 Year
  Sex: Female
  Weight: 62.1428 kg

DRUGS (8)
  1. PLAVIX [Suspect]
     Dosage: 75MG DAILY PO
     Route: 048
  2. LEVOTHYROXINE SODIUM [Concomitant]
  3. ALENDRONATE SODIUM [Concomitant]
  4. HCTZ [Concomitant]
  5. LUNESTA [Concomitant]
  6. COZAAR [Concomitant]
  7. NEXIUM [Concomitant]
  8. POTASSIUM [Concomitant]

REACTIONS (4)
  - HAEMATOCRIT DECREASED [None]
  - HAEMATOMA [None]
  - HAEMOGLOBIN DECREASED [None]
  - HAEMORRHAGE [None]
